FAERS Safety Report 6306582-7 (Version None)
Quarter: 2009Q3

REPORT INFORMATION
  Report Type: 
  Country: None (occurrence: None)
  Receive Date: 20090812
  Receipt Date: 20090805
  Transmission Date: 20100115
  Serious: Yes (Death)
  Sender: FDA-Public Use
  Company Number: A0790135A

PATIENT
  Age: 64 Year
  Sex: Female

DRUGS (8)
  1. LAMICTAL [Suspect]
     Indication: DRUG USE FOR UNKNOWN INDICATION
     Dosage: 100MG THREE TIMES PER DAY
     Route: 048
  2. ATENOLOL [Concomitant]
  3. FUROSEMIDE [Concomitant]
  4. PREVACID [Concomitant]
  5. ZETIA [Concomitant]
  6. PLAVIX [Concomitant]
  7. ATACAND [Concomitant]
  8. NOVOLIN R [Concomitant]

REACTIONS (1)
  - DEATH [None]
